FAERS Safety Report 18833183 (Version 2)
Quarter: 2021Q1

REPORT INFORMATION
  Report Type: Report from Study
  Country: US (occurrence: US)
  Receive Date: 20210201
  Receipt Date: 20210216
  Transmission Date: 20210419
  Serious: No
  Sender: FDA-Public Use
  Company Number: US-TOLMAR, INC.-21US025129

PATIENT
  Sex: Male

DRUGS (2)
  1. ELIGARD [Suspect]
     Active Substance: LEUPROLIDE ACETATE
     Indication: PROSTATE CANCER
     Dosage: 30 MG, Q 4 MONTH
     Route: 065
  2. LUPRON [Concomitant]
     Active Substance: LEUPROLIDE ACETATE
     Indication: PROSTATE CANCER

REACTIONS (1)
  - Burning sensation [Unknown]
